FAERS Safety Report 7830852-4 (Version None)
Quarter: 2011Q4

REPORT INFORMATION
  Report Type: 
  Country: None (occurrence: None)
  Receive Date: 20111021
  Receipt Date: 20111017
  Transmission Date: 20120403
  Serious: Yes (Other)
  Sender: FDA-Public Use
  Company Number: IT-PFIZER INC-2011251297

PATIENT
  Age: 59 Year
  Sex: Male

DRUGS (6)
  1. PROGRAF [Concomitant]
     Dosage: 1 MG, UNK
     Route: 048
     Dates: start: 20110201, end: 20111011
  2. PEPTAZOL [Concomitant]
     Dosage: UNK
     Route: 048
     Dates: start: 20110201, end: 20111011
  3. FRAGMIN [Concomitant]
     Dosage: UNK
     Route: 058
  4. PIPERACILLIN AND TAZOBACTAM [Suspect]
     Indication: BILIARY SEPSIS
     Dosage: 9 G, DAILY
     Route: 042
     Dates: start: 20110916, end: 20110919
  5. DEURSIL [Concomitant]
     Dosage: UNK
     Route: 048
  6. ASPIRIN [Concomitant]
     Dosage: UNK
     Route: 048
     Dates: start: 20110201, end: 20111011

REACTIONS (1)
  - LARYNGEAL OEDEMA [None]
